FAERS Safety Report 14028038 (Version 1)
Quarter: 2017Q3

REPORT INFORMATION
  Report Type: Spontaneous
  Country: US (occurrence: None)
  Receive Date: 20170930
  Receipt Date: 20170930
  Transmission Date: 20171128
  Serious: Yes (Hospitalization)
  Sender: FDA-Public Use
  Company Number: None

PATIENT
  Age: 40 Year
  Sex: Male
  Weight: 102.1 kg

DRUGS (1)
  1. CISPLATIN. [Suspect]
     Active Substance: CISPLATIN
     Dates: end: 20170418

REACTIONS (9)
  - Inflammation [None]
  - Feeding disorder [None]
  - Neck pain [None]
  - Radiation dysphagia [None]
  - Radiation associated pain [None]
  - Stomatitis [None]
  - Cough [None]
  - Odynophagia [None]
  - Radiation injury [None]

NARRATIVE: CASE EVENT DATE: 20170422
